FAERS Safety Report 7339942-6 (Version None)
Quarter: 2011Q1

REPORT INFORMATION
  Report Type: 
  Country: None (occurrence: None)
  Receive Date: 20110228
  Receipt Date: 20110210
  Transmission Date: 20110831
  Serious: Yes (Other)
  Sender: FDA-Public Use
  Company Number: AUR-APL-2011-00514

PATIENT
  Age: 9 Year
  Sex: Male

DRUGS (1)
  1. CEFTRIAXON [Suspect]
     Indication: ABDOMINAL PAIN
     Dosage: 1GRAM - DAILY - IV
     Route: 042
     Dates: start: 20100929, end: 20101001

REACTIONS (1)
  - CHOLELITHIASIS [None]
